FAERS Safety Report 7514451-X (Version None)
Quarter: 2011Q2

REPORT INFORMATION
  Report Type: 
  Country: None (occurrence: None)
  Receive Date: 20110601
  Receipt Date: 20110524
  Transmission Date: 20111010
  Serious: Yes (Death)
  Sender: FDA-Public Use
  Company Number: JP-JNJFOC-20110512344

PATIENT
  Age: 87 Year
  Sex: Male

DRUGS (5)
  1. NORVASC [Concomitant]
     Route: 048
  2. URIEF [Concomitant]
     Route: 048
  3. KAMAG G [Concomitant]
     Route: 048
  4. GALANTAMINE HYDROBROMIDE [Suspect]
     Indication: DEMENTIA ALZHEIMER'S TYPE
     Route: 048
     Dates: start: 20110407, end: 20110430
  5. ASPIRIN [Concomitant]
     Route: 048

REACTIONS (1)
  - MARASMUS [None]
